FAERS Safety Report 10029940 (Version 1)
Quarter: 2014Q1

REPORT INFORMATION
  Report Type: Spontaneous
  Country: US (occurrence: US)
  Receive Date: 20140323
  Receipt Date: 20140323
  Transmission Date: 20141002
  Serious: No
  Sender: FDA-Public Use
  Company Number: US-ALLERGAN-1305904US

PATIENT
  Sex: Female

DRUGS (2)
  1. LATISSE 0.03% [Suspect]
     Indication: GROWTH OF EYELASHES
     Route: 061
  2. LATISSE 0.03% [Suspect]

REACTIONS (3)
  - Application site discolouration [Recovered/Resolved]
  - Madarosis [Not Recovered/Not Resolved]
  - Drug ineffective [Unknown]
